FAERS Safety Report 5241462-X (Version None)
Quarter: 2007Q1

REPORT INFORMATION
  Report Type: 
  Country: None (occurrence: None)
  Receive Date: 20070215
  Receipt Date: 20070215
  Transmission Date: 20070707
  Serious: Yes (Other)
  Sender: FDA-Public Use
  Company Number: None

PATIENT
  Sex: Female
  Weight: 150.5942 kg

DRUGS (6)
  1. NEURONTIN [Suspect]
     Indication: NEUROPATHY PERIPHERAL
     Dosage: 300MG TID PO
     Route: 048
     Dates: start: 20060101
  2. FLEXERIL [Concomitant]
  3. DDAVP (NEEDS NO REFRIGERATION) [Concomitant]
  4. ATENOLOL [Concomitant]
  5. NAPROSYN [Concomitant]
  6. PERCOCET [Concomitant]

REACTIONS (3)
  - DEPRESSION [None]
  - MOOD SWINGS [None]
  - SOMNOLENCE [None]
